FAERS Safety Report 19953516 (Version 1)
Quarter: 2021Q4

REPORT INFORMATION
  Report Type: Spontaneous
  Country: US (occurrence: US)
  Receive Date: 20211014
  Receipt Date: 20211014
  Transmission Date: 20220303
  Serious: Yes (Other)
  Sender: FDA-Public Use
  Company Number: US-CADILA HEALTHCARE LIMITED-US-ZYDUS-070411

PATIENT

DRUGS (8)
  1. AMILORIDE [Suspect]
     Active Substance: AMILORIDE
     Indication: Hypertension
     Dosage: 10 MILLIGRAM, QD
     Route: 065
  2. LABETALOL HYDROCHLORIDE [Suspect]
     Active Substance: LABETALOL HYDROCHLORIDE
     Indication: Hypertension
     Dosage: 400 MILLIGRAM, BID
     Route: 065
  3. NIFEDIPINE [Suspect]
     Active Substance: NIFEDIPINE
     Indication: Hypertension
     Dosage: 60 MILLIGRAM
     Route: 065
  4. NIFEDIPINE [Suspect]
     Active Substance: NIFEDIPINE
     Dosage: 30 MILLIGRAM, QD
     Route: 065
  5. ACETAMINOPHEN\BUTABARBITAL\CAFFEINE [Suspect]
     Active Substance: ACETAMINOPHEN\BUTABARBITAL\CAFFEINE
     Indication: Headache
     Dosage: 90 TABLETS IN WITHIN 2 TO 3 WEEKS
     Route: 065
  6. POTASSIUM CHLORIDE [Suspect]
     Active Substance: POTASSIUM CHLORIDE
     Indication: Product used for unknown indication
     Dosage: 60 MILLIEQUIVALENT
     Route: 042
  7. POTASSIUM CHLORIDE [Suspect]
     Active Substance: POTASSIUM CHLORIDE
     Dosage: 60 MILLIEQUIVALENT
     Route: 048
  8. DESMOPRESSIN [Suspect]
     Active Substance: DESMOPRESSIN
     Dosage: 1 MICROGRAM
     Route: 042

REACTIONS (2)
  - Hyponatraemia [Unknown]
  - Maternal exposure during pregnancy [Unknown]
